FAERS Safety Report 12260730 (Version 2)
Quarter: 2016Q2

REPORT INFORMATION
  Report Type: Spontaneous
  Country: NL (occurrence: NL)
  Receive Date: 20160412
  Receipt Date: 20160503
  Transmission Date: 20160815
  Serious: Yes (Hospitalization, Other)
  Sender: FDA-Public Use
  Company Number: NL-GILEAD-2016-0206452

PATIENT
  Sex: Male

DRUGS (1)
  1. IDELALISIB [Suspect]
     Active Substance: IDELALISIB
     Indication: PRODUCT USED FOR UNKNOWN INDICATION
     Dosage: UNK
     Route: 065
     Dates: start: 20151223, end: 20160330

REACTIONS (5)
  - Lymphadenopathy [Unknown]
  - Pneumonitis [Not Recovered/Not Resolved]
  - Rash [Unknown]
  - Pneumocystis jirovecii pneumonia [Recovered/Resolved]
  - Disease progression [Unknown]
